FAERS Safety Report 21839085 (Version 1)
Quarter: 2023Q1

REPORT INFORMATION
  Report Type: Spontaneous
  Country: US (occurrence: None)
  Receive Date: 20230108
  Receipt Date: 20230108
  Transmission Date: 20230417
  Serious: Yes (Hospitalization)
  Sender: FDA-Public Use
  Company Number: None

PATIENT
  Age: 47 Year
  Sex: Female
  Weight: 115 kg

DRUGS (1)
  1. ZONISAMIDE [Suspect]
     Active Substance: ZONISAMIDE
     Indication: Migraine
     Dosage: 1 TAB AT BEDTIME PO
     Route: 048
     Dates: start: 20220809, end: 20220912

REACTIONS (3)
  - Dyspnoea [None]
  - Contraindicated product prescribed [None]
  - Drug hypersensitivity [None]

NARRATIVE: CASE EVENT DATE: 20220912
